FAERS Safety Report 9135361 (Version 1)
Quarter: 2013Q1

REPORT INFORMATION
  Report Type: Spontaneous
  Country: US (occurrence: US)
  Receive Date: 20130304
  Receipt Date: 20130304
  Transmission Date: 20140127
  Serious: No
  Sender: FDA-Public Use
  Company Number: US-ENDO PHARMACEUTICALS INC.-ENDC20110159

PATIENT
  Age: 36 Year
  Sex: Female

DRUGS (2)
  1. ENDOCET [Suspect]
     Indication: PAIN IN EXTREMITY
     Dosage: UNKNOWN
     Route: 048
     Dates: start: 201106
  2. ENDOCET [Suspect]
     Indication: BACK PAIN

REACTIONS (2)
  - Rash erythematous [Not Recovered/Not Resolved]
  - Periorbital oedema [Not Recovered/Not Resolved]
